FAERS Safety Report 5522379-X (Version None)
Quarter: 2007Q4

REPORT INFORMATION
  Report Type: 
  Country: None (occurrence: None)
  Receive Date: 20071120
  Receipt Date: 20071108
  Transmission Date: 20080405
  Serious: Yes (Death)
  Sender: FDA-Public Use
  Company Number: PH-PFIZER INC-2007065799

PATIENT
  Age: 88 Year
  Sex: Female
  Weight: 65 kg

DRUGS (3)
  1. LYRICA [Suspect]
     Indication: NEUROPATHY PERIPHERAL
     Route: 048
  2. PROPRANOLOL [Concomitant]
  3. PROPYLTHIOURACIL [Concomitant]

REACTIONS (1)
  - METASTATIC NEOPLASM [None]
